FAERS Safety Report 10999059 (Version 1)
Quarter: 2015Q2

REPORT INFORMATION
  Report Type: Spontaneous
  Country: DK (occurrence: CH)
  Receive Date: 20150408
  Receipt Date: 20150408
  Transmission Date: 20150821
  Serious: Yes (Hospitalization)
  Sender: FDA-Public Use
  Company Number: CH-FRI-1000075675

PATIENT
  Age: 78 Year
  Sex: Male

DRUGS (5)
  1. ESCITALOPRAM [Suspect]
     Active Substance: ESCITALOPRAM OXALATE
     Indication: DEPRESSION
     Dosage: 20 MG
     Route: 048
     Dates: start: 20140301, end: 20150306
  2. IRFEN LACTAB [Suspect]
     Active Substance: IBUPROFEN
     Indication: PAIN
     Dosage: 800 MG
     Route: 048
     Dates: start: 20150101, end: 20150306
  3. DAFALGAN [Concomitant]
     Active Substance: ACETAMINOPHEN
     Indication: PAIN
     Dosage: 3000 MG
     Route: 046
     Dates: start: 20150101, end: 20150306
  4. ANXIOLIT [Concomitant]
     Active Substance: OXAZEPAM
     Indication: DEPRESSION
     Dosage: 7.5 MG
     Route: 048
     Dates: start: 20150306
  5. CLEXANE [Concomitant]
     Active Substance: ENOXAPARIN SODIUM
     Indication: THROMBOSIS PROPHYLAXIS
     Dosage: 40 MG
     Route: 058
     Dates: start: 20150306

REACTIONS (4)
  - Pruritus [Recovering/Resolving]
  - Transaminases increased [Recovering/Resolving]
  - Cholestasis [Recovering/Resolving]
  - Rash erythematous [Recovering/Resolving]

NARRATIVE: CASE EVENT DATE: 20150306
